FAERS Safety Report 24254328 (Version 4)
Quarter: 2025Q2

REPORT INFORMATION
  Report Type: Report from Study
  Country: US (occurrence: US)
  Receive Date: 20240827
  Receipt Date: 20250619
  Transmission Date: 20250717
  Serious: Yes (Hospitalization, Other)
  Sender: TAKEDA
  Company Number: US-TAKEDA-US202030898

PATIENT
  Sex: Female
  Weight: 71.202 kg

DRUGS (23)
  1. ICATIBANT [Suspect]
     Active Substance: ICATIBANT ACETATE
     Indication: Immune system disorder
  2. ICATIBANT [Suspect]
     Active Substance: ICATIBANT ACETATE
  3. CINRYZE [Suspect]
     Active Substance: HUMAN C1-ESTERASE INHIBITOR
     Indication: Immune system disorder
     Dosage: 1000 INTERNATIONAL UNIT, TID
  4. CINRYZE [Suspect]
     Active Substance: HUMAN C1-ESTERASE INHIBITOR
  5. CINRYZE [Suspect]
     Active Substance: HUMAN C1-ESTERASE INHIBITOR
  6. HEPARIN [Concomitant]
     Active Substance: HEPARIN SODIUM
  7. DIPHENHYDRAMINE HYDROCHLORIDE [Concomitant]
     Active Substance: DIPHENHYDRAMINE HYDROCHLORIDE
  8. DANAZOL [Concomitant]
     Active Substance: DANAZOL
  9. METHYLPREDNISOLONE [Concomitant]
     Active Substance: METHYLPREDNISOLONE
  10. COLCRYS [Concomitant]
     Active Substance: COLCHICINE
  11. SODIUM CHLORIDE [Concomitant]
     Active Substance: SODIUM CHLORIDE
  12. EPINEPHRINE [Concomitant]
     Active Substance: EPINEPHRINE
  13. PLAQUENIL [Concomitant]
     Active Substance: HYDROXYCHLOROQUINE SULFATE
  14. TYLENOL [Concomitant]
     Active Substance: ACETAMINOPHEN
  15. HYDROXYZINE HYDROCHLORIDE [Concomitant]
     Active Substance: HYDROXYZINE HYDROCHLORIDE
  16. FOLIC ACID\IRON [Concomitant]
     Active Substance: FOLIC ACID\IRON
  17. Senior [Concomitant]
  18. Lmx [Concomitant]
  19. ERRIN [Concomitant]
     Active Substance: NORETHINDRONE
  20. LIDOCAINE [Concomitant]
     Active Substance: LIDOCAINE
  21. STERILE WATER [Concomitant]
     Active Substance: WATER
  22. SODIUM CHLORIDE [Concomitant]
     Active Substance: SODIUM CHLORIDE
  23. FISH OIL [Concomitant]
     Active Substance: FISH OIL

REACTIONS (13)
  - Seizure [Unknown]
  - Hereditary angioedema [Unknown]
  - Infusion site swelling [Unknown]
  - Somnolence [Unknown]
  - Back disorder [Unknown]
  - Impaired work ability [Unknown]
  - Fall [Unknown]
  - Recalled product [Unknown]
  - Inappropriate schedule of product administration [Unknown]
  - Product dose omission issue [Unknown]
  - Head injury [Unknown]
  - Product distribution issue [Unknown]
  - Inability to afford medication [Unknown]
